FAERS Safety Report 20479570 (Version 1)
Quarter: 2022Q1

REPORT INFORMATION
  Report Type: Spontaneous
  Country: US (occurrence: None)
  Receive Date: 20220215
  Receipt Date: 20220215
  Transmission Date: 20220424
  Serious: Yes (Other)
  Sender: FDA-Public Use
  Company Number: None

PATIENT
  Age: 41 Year
  Sex: Male
  Weight: 86.31 kg

DRUGS (3)
  1. TRAZODONE [Suspect]
     Active Substance: TRAZODONE HYDROCHLORIDE
     Indication: Insomnia
     Dosage: OTHER FREQUENCY : PRN BEDTIME;?
     Route: 048
     Dates: start: 20211123, end: 20211129
  2. MIRTAZAPINE [Concomitant]
     Active Substance: MIRTAZAPINE
  3. Chloecalciferol [Concomitant]

REACTIONS (2)
  - Erection increased [None]
  - Therapy cessation [None]

NARRATIVE: CASE EVENT DATE: 20211129
